FAERS Safety Report 16011386 (Version 2)
Quarter: 2019Q1

REPORT INFORMATION
  Report Type: Spontaneous
  Country: US (occurrence: US)
  Receive Date: 20190227
  Receipt Date: 20190314
  Transmission Date: 20190418
  Serious: Yes (Hospitalization, Disabling, Other)
  Sender: FDA-Public Use
  Company Number: US-AMGEN-USASP2019028242

PATIENT
  Age: 61 Year
  Sex: Female
  Weight: 38 kg

DRUGS (2)
  1. PROLIA [Suspect]
     Active Substance: DENOSUMAB
     Dosage: 60 MILLIGRAM, Q6MO
     Route: 058
     Dates: start: 20181220
  2. PROLIA [Suspect]
     Active Substance: DENOSUMAB
     Indication: OSTEOPOROSIS
     Dosage: 60 MILLIGRAM, Q6MO
     Route: 058
     Dates: start: 2013, end: 2015

REACTIONS (6)
  - Bone density abnormal [Unknown]
  - Hip fracture [Not Recovered/Not Resolved]
  - Femur fracture [Recovered/Resolved]
  - Chondrosis [Unknown]
  - Musculoskeletal discomfort [Unknown]
  - Fall [Unknown]

NARRATIVE: CASE EVENT DATE: 20181030
